FAERS Safety Report 17891621 (Version 2)
Quarter: 2022Q1

REPORT INFORMATION
  Report Type: Spontaneous
  Country: BR (occurrence: BR)
  Receive Date: 20200612
  Receipt Date: 20220131
  Transmission Date: 20220423
  Serious: Yes (Other)
  Sender: FDA-Public Use
  Company Number: BR-GLAXOSMITHKLINE-BR2018GSK151493

PATIENT
  Age: 25 Year
  Sex: Female
  Weight: 78 kg

DRUGS (1)
  1. BENLYSTA [Suspect]
     Active Substance: BELIMUMAB
     Indication: Systemic lupus erythematosus
     Dosage: 720 MG, UNK
     Dates: start: 20180524, end: 20210915

REACTIONS (10)
  - Systemic lupus erythematosus [Unknown]
  - Influenza [Unknown]
  - Infection [Recovered/Resolved]
  - Weight fluctuation [Unknown]
  - Disease recurrence [Unknown]
  - Arthralgia [Unknown]
  - Sluggishness [Unknown]
  - Inappropriate schedule of product administration [Not Recovered/Not Resolved]
  - Circumstance or information capable of leading to medication error [Recovered/Resolved]
  - Underdose [Unknown]

NARRATIVE: CASE EVENT DATE: 20200510
